FAERS Safety Report 21564130 (Version 1)
Quarter: 2022Q4

REPORT INFORMATION
  Report Type: Spontaneous
  Country: CN (occurrence: None)
  Receive Date: 20221108
  Receipt Date: 20221108
  Transmission Date: 20230113
  Serious: Yes (Other)
  Sender: FDA-Public Use
  Company Number: CN-Merck Healthcare KGaA-9362755

PATIENT
  Age: 30 Year
  Sex: Female
  Weight: 56 kg

DRUGS (8)
  1. LUVERIS [Suspect]
     Active Substance: LUTROPIN ALFA
     Indication: Infertility female
     Route: 058
     Dates: start: 20220824, end: 20220831
  2. OVIDREL [Suspect]
     Active Substance: CHORIOGONADOTROPIN ALFA
     Indication: Infertility female
     Route: 058
     Dates: start: 20220901, end: 20220901
  3. CRINONE [Suspect]
     Active Substance: PROGESTERONE
     Indication: Oocyte harvest
     Route: 067
     Dates: start: 20220903, end: 20220906
  4. MENOPUR [Suspect]
     Active Substance: FOLLITROPIN\LUTEINIZING HORMONE
     Indication: Infertility female
     Route: 058
     Dates: start: 20220831, end: 20220831
  5. FOLLITROPIN ALFA [Suspect]
     Active Substance: FOLLITROPIN ALFA
     Indication: Infertility female
     Route: 058
     Dates: start: 20220831, end: 20220831
  6. DUPHASTON [Suspect]
     Active Substance: DYDROGESTERONE
     Indication: Oocyte harvest
     Route: 048
     Dates: start: 20220903, end: 20220906
  7. MENOTROPINS [Suspect]
     Active Substance: MENOTROPINS
     Indication: Infertility
     Route: 030
     Dates: start: 20220819, end: 20220822
  8. SOMATROPIN [Suspect]
     Active Substance: SOMATROPIN
     Indication: Infertility
     Route: 058
     Dates: start: 20220819, end: 20220831

REACTIONS (1)
  - Ovarian hyperstimulation syndrome [Recovering/Resolving]

NARRATIVE: CASE EVENT DATE: 20220913
